FAERS Safety Report 10452315 (Version 2)
Quarter: 2014Q3

REPORT INFORMATION
  Report Type: Report from Study
  Country: JP (occurrence: JP)
  Receive Date: 20140915
  Receipt Date: 20140915
  Transmission Date: 20150326
  Serious: Yes (Death, Other)
  Sender: FDA-Public Use
  Company Number: PHHY2013JP026036

PATIENT
  Age: 67 Year
  Sex: Male
  Weight: 49 kg

DRUGS (4)
  1. FUROSEMIDE. [Concomitant]
     Active Substance: FUROSEMIDE
     Dosage: UNK UKN, UNK
  2. INSULIN [Concomitant]
     Active Substance: INSULIN NOS
     Dosage: UNK UKN, UNK
  3. AFINITOR [Suspect]
     Active Substance: EVEROLIMUS
     Indication: METASTATIC RENAL CELL CARCINOMA
     Dosage: 10 MG, DAILY
     Route: 048
     Dates: start: 20101124, end: 20101206
  4. AFINITOR [Suspect]
     Active Substance: EVEROLIMUS
     Dosage: 5 MG, DAILY
     Route: 048
     Dates: start: 20110105

REACTIONS (11)
  - Decreased appetite [Unknown]
  - Hyperglycaemia [Not Recovered/Not Resolved]
  - Platelet count decreased [Recovered/Resolved]
  - Malignant neoplasm progression [Not Recovered/Not Resolved]
  - Blood alkaline phosphatase increased [Unknown]
  - Death [Fatal]
  - Haemoglobin decreased [Unknown]
  - Oedema [Unknown]
  - Anaemia [Unknown]
  - Diabetes mellitus [Unknown]
  - Hypertriglyceridaemia [Unknown]

NARRATIVE: CASE EVENT DATE: 20101206
